FAERS Safety Report 14044223 (Version 1)
Quarter: 2017Q4

REPORT INFORMATION
  Report Type: Report from Study
  Country: None (occurrence: BR)
  Receive Date: 20171004
  Receipt Date: 20171004
  Transmission Date: 20180321
  Serious: Yes (Hospitalization, Other)
  Sender: FDA-Public Use
  Company Number: BR-ABBVIE-17K-020-2116889-00

PATIENT
  Age: 40 Year
  Sex: Male
  Weight: 70 kg

DRUGS (1)
  1. HUMIRA [Suspect]
     Active Substance: ADALIMUMAB
     Indication: CROHN^S DISEASE
     Route: 058
     Dates: start: 20161220, end: 201708

REACTIONS (8)
  - Intestinal fistula [Recovering/Resolving]
  - Peritonitis [Unknown]
  - Intestinal perforation [Unknown]
  - Abscess intestinal [Recovering/Resolving]
  - Crohn^s disease [Unknown]
  - Pleural effusion [Unknown]
  - Pyrexia [Recovering/Resolving]
  - Drug ineffective [Unknown]

NARRATIVE: CASE EVENT DATE: 20170809
